FAERS Safety Report 14346668 (Version 1)
Quarter: 2018Q1

REPORT INFORMATION
  Report Type: Spontaneous
  Country: US (occurrence: US)
  Receive Date: 20180103
  Receipt Date: 20180103
  Transmission Date: 20180509
  Serious: No
  Sender: FDA-Public Use
  Company Number: US-BAYER-2018-000193

PATIENT
  Sex: Female

DRUGS (3)
  1. PSYLLIUM [Concomitant]
     Active Substance: PLANTAGO SEED
  2. STOOL SOFTENER (DOCUSATE) [Concomitant]
     Active Substance: DOCUSATE
  3. MIRALAX [Suspect]
     Active Substance: POLYETHYLENE GLYCOL 3350
     Indication: GASTROINTESTINAL DISORDER
     Dosage: 1 DF, QD ONE DOSE DAILY DOSE
     Route: 048

REACTIONS (3)
  - Constipation [Not Recovered/Not Resolved]
  - Product prescribing issue [Unknown]
  - Incorrect drug administration duration [Unknown]

NARRATIVE: CASE EVENT DATE: 2017
